FAERS Safety Report 7260560-2 (Version None)
Quarter: 2011Q1

REPORT INFORMATION
  Report Type: 
  Country: None (occurrence: None)
  Receive Date: 20110130
  Receipt Date: 20101220
  Transmission Date: 20110831
  Serious: No
  Sender: FDA-Public Use
  Company Number: US-ABBOTT-10P-163-0692763-00

PATIENT
  Age: 58 Year
  Sex: Female

DRUGS (9)
  1. MELOXICAM [Concomitant]
     Indication: ARTHRALGIA
     Dosage: AS NEEDED
  2. HUMIRA [Suspect]
     Indication: RHEUMATOID ARTHRITIS
     Dates: start: 20101001
  3. FLOVENT [Concomitant]
     Indication: ASTHMA PROPHYLAXIS
  4. PROTONIX [Concomitant]
     Indication: PROPHYLAXIS AGAINST GASTROINTESTINAL ULCER
  5. VERAPAMIL [Concomitant]
     Indication: MIGRAINE PROPHYLAXIS
  6. VENLAFAXINE [Concomitant]
     Indication: DEPRESSION
  7. ASTYLYN SINUS SPRAY [Concomitant]
     Indication: HYPERSENSITIVITY
  8. ESTRADIOL [Concomitant]
     Indication: HORMONE REPLACEMENT THERAPY
  9. SINGULAIR [Concomitant]
     Indication: HYPERSENSITIVITY

REACTIONS (6)
  - SINUSITIS [None]
  - INJECTION SITE HAEMATOMA [None]
  - SINUS HEADACHE [None]
  - UPPER-AIRWAY COUGH SYNDROME [None]
  - RHINITIS [None]
  - INJECTION SITE PAIN [None]
